FAERS Safety Report 5012470-9 (Version None)
Quarter: 2006Q2

REPORT INFORMATION
  Report Type: 
  Country: None (occurrence: None)
  Receive Date: 20060414
  Receipt Date: 20060117
  Transmission Date: 20061013
  Serious: No
  Sender: FDA-Public Use
  Company Number: 2006SP000286

PATIENT
  Age: 55 Year
  Sex: Female
  Weight: 88.905 kg

DRUGS (3)
  1. LUNESTA [Suspect]
     Indication: INSOMNIA
     Dosage: 3 MG 1X ORAL
     Route: 048
     Dates: start: 20060116, end: 20060116
  2. TYLENOL (CAPLET) [Concomitant]
  3. SIMVASTATIN [Concomitant]

REACTIONS (7)
  - COUGH [None]
  - FACE OEDEMA [None]
  - FATIGUE [None]
  - GAIT DISTURBANCE [None]
  - OEDEMA PERIPHERAL [None]
  - PHARYNGOLARYNGEAL PAIN [None]
  - VOMITING [None]
